FAERS Safety Report 4441865-7 (Version None)
Quarter: 2004Q3

REPORT INFORMATION
  Report Type: 
  Country: None (occurrence: None)
  Receive Date: 20040907
  Receipt Date: 20040831
  Transmission Date: 20050211
  Serious: Yes (Life-Threatening, Hospitalization)
  Sender: FDA-Public Use
  Company Number: GB-ROCHE-379238

PATIENT
  Age: 22 Year
  Sex: Female

DRUGS (3)
  1. CEFTRIAXONE SODIUM [Suspect]
     Indication: MENINGITIS
     Route: 042
     Dates: start: 20040806, end: 20040810
  2. ACYCLOVIR [Suspect]
     Route: 042
     Dates: start: 20040806
  3. ACYCLOVIR [Suspect]
     Dosage: DOSE WAS REDUCED TO AN UNKNOWN AMOUNT.
     Route: 042

REACTIONS (1)
  - RENAL FAILURE ACUTE [None]
